FAERS Safety Report 8194177-2 (Version None)
Quarter: 2012Q1

REPORT INFORMATION
  Report Type: 
  Country: None (occurrence: None)
  Receive Date: 20120308
  Receipt Date: 20120227
  Transmission Date: 20120608
  Serious: Yes (Death, Hospitalization)
  Sender: FDA-Public Use
  Company Number: DE-ELI_LILLY_AND_COMPANY-DE201202007497

PATIENT
  Age: 84 Year
  Sex: Male

DRUGS (4)
  1. FORTEO [Suspect]
     Indication: OSTEOPOROSIS
     Dosage: UNK, QD
     Route: 058
     Dates: start: 20110801
  2. CORTISONE ACETATE [Concomitant]
     Dosage: UNK, QD
  3. ANTIHYPERTENSIVES [Concomitant]
     Dosage: UNK, QD
  4. MYFORTIC [Concomitant]
     Dosage: UNK, QD

REACTIONS (2)
  - HOSPITALISATION [None]
  - NEOPLASM [None]
